FAERS Safety Report 17157267 (Version 2)
Quarter: 2020Q1

REPORT INFORMATION
  Report Type: Report from Study
  Country: IT (occurrence: IT)
  Receive Date: 20191216
  Receipt Date: 20200213
  Transmission Date: 20200409
  Serious: Yes (Hospitalization)
  Sender: FDA-Public Use
  Company Number: IT-ACCORD-165540

PATIENT
  Age: 65 Year
  Sex: Male

DRUGS (16)
  1. METHOTREXATE. [Suspect]
     Active Substance: METHOTREXATE
     Indication: LYMPHOMA
     Route: 042
     Dates: start: 20190924
  2. TROPISETRON [Concomitant]
     Active Substance: TROPISETRON
  3. ZEFFIX [Concomitant]
     Active Substance: LAMIVUDINE
     Dosage: (STRENGTH-100 MG)
  4. CHLORPHENAMINE [Concomitant]
     Active Substance: CHLORPHENIRAMINE MALEATE
  5. DOXORUBICIN [Suspect]
     Active Substance: DOXORUBICIN
     Indication: LYMPHOMA
     Route: 042
     Dates: start: 20190903
  6. VINCRISTINE [Suspect]
     Active Substance: VINCRISTINE
     Indication: LYMPHOMA
     Route: 042
     Dates: start: 20190903
  7. ACICLOVIR [Concomitant]
     Active Substance: ACYCLOVIR
  8. BACTRIM [Concomitant]
     Active Substance: SULFAMETHOXAZOLE\TRIMETHOPRIM
     Dosage: (160 MG + 800 MG )
  9. MYCOSTATIN [Concomitant]
     Active Substance: NYSTATIN
     Dosage: (100,000 U.I./ML)
  10. RITUXIMAB. [Suspect]
     Active Substance: RITUXIMAB
     Indication: LYMPHOMA
     Route: 042
     Dates: start: 20190910
  11. CYCLOPHOSPHAMIDE/CYCLOPHOSPHAMIDE MONOHYDRATE [Suspect]
     Active Substance: CYCLOPHOSPHAMIDE
     Indication: LYMPHOMA
     Route: 042
     Dates: start: 20190903
  12. GRANISETRON [Concomitant]
     Active Substance: GRANISETRON
  13. CARDIOASPIRIN [Concomitant]
     Active Substance: ASPIRIN
     Dosage: STRENGTH 100 MG
  14. PARACETAMOL [Concomitant]
     Active Substance: ACETAMINOPHEN
  15. HYDROCORTISONE. [Concomitant]
     Active Substance: HYDROCORTISONE
  16. METHYLPREDNISOLONE. [Concomitant]
     Active Substance: METHYLPREDNISOLONE

REACTIONS (3)
  - Speech disorder [Recovering/Resolving]
  - Cerebral ischaemia [Recovering/Resolving]
  - Facial paresis [Recovering/Resolving]

NARRATIVE: CASE EVENT DATE: 20191028
